FAERS Safety Report 4600294-3 (Version None)
Quarter: 2005Q1

REPORT INFORMATION
  Report Type: 
  Country: None (occurrence: None)
  Receive Date: 20050127
  Receipt Date: 20041103
  Transmission Date: 20050727
  Serious: No
  Sender: FDA-Public Use
  Company Number: USA041183108

PATIENT
  Age: 4 Year
  Sex: Female

DRUGS (1)
  1. STRATTERA [Suspect]
     Indication: ATTENTION DEFICIT/HYPERACTIVITY DISORDER
     Dosage: 10 MG/2 DAY
     Dates: start: 20040901

REACTIONS (3)
  - ABNORMAL BEHAVIOUR [None]
  - CRYING [None]
  - EMOTIONAL DISORDER [None]
